FAERS Safety Report 5491693-9 (Version None)
Quarter: 2007Q4

REPORT INFORMATION
  Report Type: 
  Country: None (occurrence: None)
  Receive Date: 20071018
  Receipt Date: 20071018
  Transmission Date: 20080405
  Serious: Yes (Other)
  Sender: FDA-Public Use
  Company Number: None

PATIENT
  Age: 38 Year
  Sex: Female
  Weight: 71.6683 kg

DRUGS (1)
  1. MIRENA [Suspect]
     Indication: CONTRACEPTION
     Dosage: PROGESTIN CONTINUOUS DOSE INTRACERVIC
     Route: 019
     Dates: start: 20050301, end: 20070919

REACTIONS (11)
  - ANXIETY [None]
  - FATIGUE [None]
  - HEADACHE [None]
  - HORMONE LEVEL ABNORMAL [None]
  - HYPERSENSITIVITY [None]
  - HYPOTHALAMO-PITUITARY DISORDER [None]
  - MIGRAINE [None]
  - SEXUAL DYSFUNCTION [None]
  - SINUS DISORDER [None]
  - STRESS [None]
  - WEIGHT [None]
